FAERS Safety Report 19991359 (Version 2)
Quarter: 2021Q4

REPORT INFORMATION
  Report Type: Other
  Country: US (occurrence: US)
  Receive Date: 20211025
  Receipt Date: 20211029
  Transmission Date: 20220303
  Serious: Yes (Death)
  Sender: FDA-Public Use
  Company Number: US-ROCHE-2943958

PATIENT
  Age: 80 Year
  Sex: Female

DRUGS (1)
  1. ESBRIET [Suspect]
     Active Substance: PIRFENIDONE
     Indication: Idiopathic pulmonary fibrosis
     Dosage: ONGOING: NO
     Route: 065
     Dates: end: 20210924

REACTIONS (1)
  - Death [Fatal]

NARRATIVE: CASE EVENT DATE: 20210924
